FAERS Safety Report 11349384 (Version 1)
Quarter: 2015Q3

REPORT INFORMATION
  Report Type: Spontaneous
  Country: DE (occurrence: DE)
  Receive Date: 20150807
  Receipt Date: 20150807
  Transmission Date: 20151125
  Serious: Yes (Death, Other)
  Sender: FDA-Public Use
  Company Number: DE-AMGEN-DEUSP2015079590

PATIENT
  Sex: Female

DRUGS (9)
  1. CYCLOPHOSPHAMIDE. [Concomitant]
     Active Substance: CYCLOPHOSPHAMIDE
     Indication: B-CELL LYMPHOMA
     Dosage: 1200MG MILLIGRAMS, 1 TIME IN 14 DAYS FOR 45 DAYS
     Route: 042
     Dates: start: 20150325, end: 20150508
  2. PREDNISOLONE. [Concomitant]
     Active Substance: PREDNISOLONE
     Indication: B-CELL LYMPHOMA
     Dosage: 500MG EVERY CYCLE FOR 49 DAYS
     Route: 048
     Dates: start: 20150325, end: 20150512
  3. CIPROFLOXACIN. [Concomitant]
     Active Substance: CIPROFLOXACIN
     Indication: PNEUMONITIS
     Dosage: 1000MG MILLIGRAMS, 1 TIME A DAY
     Route: 048
     Dates: start: 20150618
  4. VINCRISTINE [Concomitant]
     Active Substance: VINCRISTINE
     Indication: B-CELL LYMPHOMA
     Dosage: 1MG MILLIGRAMS, 1 TIME IN 14 DAYS FOR 45 DAYS
     Route: 042
     Dates: start: 20150325, end: 20150508
  5. PEGFILGRASTIM [Suspect]
     Active Substance: PEGFILGRASTIM
     Indication: B-CELL LYMPHOMA
     Dosage: 0.5 ML, ON DAY 4 OF EVERY CYCLE FOR 44 DAYS
     Route: 058
     Dates: start: 20150329, end: 20150511
  6. RITUXIMAB [Suspect]
     Active Substance: RITUXIMAB
     Indication: B-CELL LYMPHOMA
     Dosage: 600MG MILLIGRAMS, 1 TIMES IN 14 DAYS FOR 107 DAYS
     Route: 042
     Dates: start: 20150325, end: 20150709
  7. PANTOPRAZOLE SODIUM. [Concomitant]
     Active Substance: PANTOPRAZOLE SODIUM
     Indication: PROPHYLAXIS
     Dosage: UNK
     Route: 048
     Dates: start: 20150618
  8. DOXORUBICINE                       /00330901/ [Concomitant]
     Active Substance: DOXORUBICIN
     Indication: B-CELL LYMPHOMA
     Dosage: 80MG MILLIGRAMS, 1 TIMES IN 14 DAYS FOR 45 DAYS
     Route: 042
     Dates: start: 20150325, end: 20150508
  9. PREDNISOLONE. [Concomitant]
     Active Substance: PREDNISOLONE
     Indication: PNEUMONITIS
     Dosage: 100MG MILLIGRAMS, 1 TIMES A DAY
     Route: 048
     Dates: start: 20150618

REACTIONS (1)
  - Pulmonary sepsis [Fatal]

NARRATIVE: CASE EVENT DATE: 20150719
